FAERS Safety Report 8153932-5 (Version None)
Quarter: 2012Q1

REPORT INFORMATION
  Report Type: 
  Country: None (occurrence: None)
  Receive Date: 20120221
  Receipt Date: 20120221
  Transmission Date: 20120608
  Serious: Yes (Other)
  Sender: FDA-Public Use
  Company Number: None

PATIENT
  Sex: Female
  Weight: 91.625 kg

DRUGS (1)
  1. VERAPAMIL EXTENDED-RELEASE [Suspect]
     Indication: MIGRAINE
     Dosage: 1 TABLET
     Route: 048
     Dates: start: 20120101, end: 20120213

REACTIONS (4)
  - HYPOACUSIS [None]
  - DIZZINESS [None]
  - TINNITUS [None]
  - BLOOD PRESSURE INADEQUATELY CONTROLLED [None]
